FAERS Safety Report 11060775 (Version 3)
Quarter: 2015Q3

REPORT INFORMATION
  Report Type: Spontaneous
  Country: FR (occurrence: FR)
  Receive Date: 20150423
  Receipt Date: 20150716
  Transmission Date: 20151125
  Serious: Yes (Hospitalization)
  Sender: FDA-Public Use
  Company Number: FR-OTSUKA-US-2015-11710

PATIENT

DRUGS (18)
  1. ABILIFY MAINTENA [Suspect]
     Active Substance: ARIPIPRAZOLE
     Indication: MANIA
  2. ABILIFY [Suspect]
     Active Substance: ARIPIPRAZOLE
     Indication: MANIA
  3. LOXAPAC [Concomitant]
     Active Substance: LOXAPINE SUCCINATE
     Indication: BIPOLAR DISORDER
     Dosage: UNK
     Route: 065
     Dates: end: 20150309
  4. VALIUM [Concomitant]
     Active Substance: DIAZEPAM
     Indication: BIPOLAR DISORDER
     Dosage: UNK
     Route: 065
     Dates: end: 20150309
  5. TERALITHE [Concomitant]
     Active Substance: LITHIUM CARBONATE
     Indication: MANIA
  6. DEPAKOTE [Suspect]
     Active Substance: DIVALPROEX SODIUM
     Indication: MANIA
  7. NOCTAMIDE [Concomitant]
     Active Substance: LORMETAZEPAM
     Indication: BIPOLAR DISORDER
     Dosage: UNK
     Route: 065
     Dates: end: 20150309
  8. NOCTAMIDE [Concomitant]
     Active Substance: LORMETAZEPAM
     Indication: MANIA
  9. TERALITHE [Concomitant]
     Active Substance: LITHIUM CARBONATE
     Indication: BIPOLAR DISORDER
     Dosage: UNK
     Route: 065
     Dates: end: 20150309
  10. THERALENE [Concomitant]
     Active Substance: TRIMEPRAZINE
     Indication: MANIA
  11. LOXAPAC [Concomitant]
     Active Substance: LOXAPINE SUCCINATE
     Indication: MANIA
  12. XEROQUEL [Concomitant]
     Active Substance: QUETIAPINE FUMARATE
     Indication: BIPOLAR DISORDER
     Dosage: UNK
     Route: 065
     Dates: end: 20150309
  13. XEROQUEL [Concomitant]
     Active Substance: QUETIAPINE FUMARATE
     Indication: MANIA
  14. ABILIFY MAINTENA [Suspect]
     Active Substance: ARIPIPRAZOLE
     Indication: BIPOLAR DISORDER
     Dosage: UNK, QM
     Route: 030
     Dates: start: 20150224, end: 20150309
  15. VALIUM [Concomitant]
     Active Substance: DIAZEPAM
     Indication: MANIA
  16. ABILIFY [Suspect]
     Active Substance: ARIPIPRAZOLE
     Indication: BIPOLAR DISORDER
     Dosage: 10 MG, QD
     Route: 048
     Dates: start: 20150213, end: 20150309
  17. DEPAKOTE [Suspect]
     Active Substance: DIVALPROEX SODIUM
     Indication: BIPOLAR DISORDER
     Dosage: UNK, QID
     Route: 048
     Dates: start: 20150302, end: 20150309
  18. THERALENE [Concomitant]
     Active Substance: TRIMEPRAZINE
     Indication: BIPOLAR DISORDER
     Dosage: UNK
     Route: 065
     Dates: end: 20150309

REACTIONS (5)
  - Dermatitis bullous [Recovered/Resolved]
  - Blood creatine phosphokinase increased [Recovered/Resolved]
  - Off label use [Unknown]
  - Pruritus [Unknown]
  - Transaminases increased [Recovered/Resolved]

NARRATIVE: CASE EVENT DATE: 20150225
